FAERS Safety Report 5548947-7 (Version None)
Quarter: 2007Q4

REPORT INFORMATION
  Report Type: 
  Country: None (occurrence: None)
  Receive Date: 20071211
  Receipt Date: 20070322
  Transmission Date: 20080405
  Serious: No
  Sender: FDA-Public Use
  Company Number: US-AMGEN-KDL210820

PATIENT
  Sex: Female

DRUGS (7)
  1. ENBREL [Suspect]
     Indication: RHEUMATOID ARTHRITIS
     Route: 058
     Dates: start: 20010907, end: 20070223
  2. PERCODAN [Concomitant]
  3. WELLBUTRIN [Concomitant]
     Dates: start: 20060907
  4. EFFEXOR [Concomitant]
     Dates: start: 20070124
  5. VITAMINS [Concomitant]
  6. RESTORIL [Concomitant]
     Dates: start: 20060907
  7. OXYCODONE HCL [Concomitant]
     Dates: start: 20060907

REACTIONS (7)
  - ASTHENIA [None]
  - DERMAL CYST [None]
  - FATIGUE [None]
  - FEELING ABNORMAL [None]
  - INSOMNIA [None]
  - NASOPHARYNGITIS [None]
  - PNEUMONIA [None]
